FAERS Safety Report 26089800 (Version 1)
Quarter: 2025Q4

REPORT INFORMATION
  Report Type: Spontaneous
  Country: US (occurrence: US)
  Receive Date: 20251125
  Receipt Date: 20251125
  Transmission Date: 20260119
  Serious: No
  Sender: AUROBINDO
  Company Number: US-AUROBINDO-AUR-APL-2025-033925

PATIENT
  Age: 72 Year
  Sex: Female
  Weight: 97.1 kg

DRUGS (1)
  1. PRASUGREL [Suspect]
     Active Substance: PRASUGREL
     Indication: Angioplasty
     Dosage: UNK
     Route: 065

REACTIONS (7)
  - Allergic reaction to excipient [Unknown]
  - Hypersensitivity [Unknown]
  - Dysphonia [Unknown]
  - Pruritus [Recovered/Resolved with Sequelae]
  - Swelling face [Recovered/Resolved with Sequelae]
  - Swollen tongue [Recovered/Resolved with Sequelae]
  - Product coating issue [Unknown]

NARRATIVE: CASE EVENT DATE: 20240701
